FAERS Safety Report 6135329-2 (Version None)
Quarter: 2009Q1

REPORT INFORMATION
  Report Type: 
  Country: None (occurrence: None)
  Receive Date: 20090327
  Receipt Date: 20090116
  Transmission Date: 20090719
  Serious: No
  Sender: FDA-Public Use
  Company Number: US-BRISTOL-MYERS SQUIBB COMPANY-14474480

PATIENT
  Age: 58 Year
  Sex: Male
  Weight: 140 kg

DRUGS (9)
  1. SPRYCEL [Suspect]
     Indication: CHRONIC MYELOID LEUKAEMIA
     Dates: start: 20080926
  2. AVINZA [Concomitant]
  3. GABAPENTIN [Concomitant]
  4. ACIPHEX [Concomitant]
  5. FLOMAX [Concomitant]
  6. EFFEXOR [Concomitant]
  7. NORVASC [Concomitant]
  8. LOPRESSOR [Concomitant]
  9. CELEBREX [Concomitant]

REACTIONS (1)
  - IMPAIRED HEALING [None]
